FAERS Safety Report 19927920 (Version 24)
Quarter: 2024Q2

REPORT INFORMATION
  Report Type: Spontaneous
  Country: CA (occurrence: CA)
  Receive Date: 20211007
  Receipt Date: 20240603
  Transmission Date: 20240716
  Serious: Yes (Hospitalization, Other)
  Sender: FDA-Public Use
  Company Number: CA-CELLTRION INC.-2021CA012332

PATIENT

DRUGS (26)
  1. INFLECTRA [Suspect]
     Active Substance: INFLIXIMAB-DYYB
     Indication: Psoriatic arthropathy
     Dosage: 6 MG/KG,  (526 MG) 0, 2, 6 THEN EVERY 8 WEEKS
     Route: 042
     Dates: start: 20210817
  2. INFLECTRA [Suspect]
     Active Substance: INFLIXIMAB-DYYB
     Indication: Rheumatoid arthritis
     Dosage: 6 MG/KG, 0, 2, 6 THEN EVERY 8 WEEKS
     Route: 042
     Dates: start: 20210831
  3. INFLECTRA [Suspect]
     Active Substance: INFLIXIMAB-DYYB
     Dosage: 6 MG/KG,  0, 2, 6 THEN EVERY 8 WEEKS
     Route: 042
     Dates: start: 20210928
  4. INFLECTRA [Suspect]
     Active Substance: INFLIXIMAB-DYYB
     Dosage: 6 MG/KG, 0, 2, 6 THEN EVERY 8 WEEKS
     Route: 042
     Dates: start: 20211123
  5. INFLECTRA [Suspect]
     Active Substance: INFLIXIMAB-DYYB
     Dosage: 6 MG/KG, 0, 2, 6 THEN EVERY 8 WEEKS
     Route: 042
     Dates: start: 20220118
  6. INFLECTRA [Suspect]
     Active Substance: INFLIXIMAB-DYYB
     Dosage: 6 MG/KG, 0, 2, 6 THEN EVERY 8 WEEKS
     Route: 042
     Dates: start: 20220323
  7. INFLECTRA [Suspect]
     Active Substance: INFLIXIMAB-DYYB
     Dosage: 6 MG/KG,  0, 2, 6 THEN EVERY 8 WEEKS
     Route: 042
     Dates: start: 20220517
  8. INFLECTRA [Suspect]
     Active Substance: INFLIXIMAB-DYYB
     Dosage: 526 MG INDUCTION DOSES 0,2,6 THEN EVERY 8 WEEKS
     Route: 042
     Dates: start: 20220712
  9. INFLECTRA [Suspect]
     Active Substance: INFLIXIMAB-DYYB
     Dosage: 526 MG INDUCTION DOSES 0,2,6 THEN EVERY 8 WEEKS
     Route: 042
     Dates: start: 20220906
  10. INFLECTRA [Suspect]
     Active Substance: INFLIXIMAB-DYYB
     Dosage: 5 MG/KG, EVERY 6 WEEKS
     Route: 042
     Dates: start: 20221027
  11. INFLECTRA [Suspect]
     Active Substance: INFLIXIMAB-DYYB
     Dosage: 600 MG (5 MG/KG), EVERY 6 WEEKS, PRESCRIBED BY PHYSICIAN (5MG/KG)
     Route: 042
     Dates: start: 20230119
  12. INFLECTRA [Suspect]
     Active Substance: INFLIXIMAB-DYYB
     Dosage: 8 MG/KG EVERY 6 WEEKS
     Route: 042
     Dates: start: 20230301
  13. INFLECTRA [Suspect]
     Active Substance: INFLIXIMAB-DYYB
     Dosage: 1000 MG (8MG/KG)  EVERY 6 WEEKS
     Route: 042
     Dates: start: 20230412, end: 20230412
  14. INFLECTRA [Suspect]
     Active Substance: INFLIXIMAB-DYYB
     Dosage: 976 MG (8MG/KG),  EVERY 6 WEEKS
     Route: 042
     Dates: start: 20230524
  15. INFLECTRA [Suspect]
     Active Substance: INFLIXIMAB-DYYB
     Dosage: 968 MG (8MG/KG) AFTER 6 WEEKS
     Route: 042
     Dates: start: 20230705
  16. INFLECTRA [Suspect]
     Active Substance: INFLIXIMAB-DYYB
     Dosage: 10 MG/KG, EVERY 6 WEEKS
     Route: 042
     Dates: start: 20230817
  17. INFLECTRA [Suspect]
     Active Substance: INFLIXIMAB-DYYB
     Dosage: 1180 MG, 5 WEEKS AND 6 DAYS
     Route: 042
     Dates: start: 20230927
  18. INFLECTRA [Suspect]
     Active Substance: INFLIXIMAB-DYYB
     Dosage: 10 MG/KG, EVERY 6 WEEKS
     Route: 042
     Dates: start: 20231108
  19. INFLECTRA [Suspect]
     Active Substance: INFLIXIMAB-DYYB
     Dosage: 1200 MG, 6 WEEKS
     Route: 042
     Dates: start: 20231220
  20. INFLECTRA [Suspect]
     Active Substance: INFLIXIMAB-DYYB
     Dosage: 10 MG/KG, EVERY 6 WEEKS
     Route: 042
     Dates: start: 20240131
  21. INFLECTRA [Suspect]
     Active Substance: INFLIXIMAB-DYYB
     Dosage: 10 MG/KG, EVERY 6 WEEKS (1240 MG)
     Route: 042
     Dates: start: 20240313
  22. INFLECTRA [Suspect]
     Active Substance: INFLIXIMAB-DYYB
     Dosage: 10 MG/KG, EVERY 6 WEEKS (1190 MG AFTER 6 WEEKS)
     Route: 042
     Dates: start: 20240424
  23. METHOTREXATE [Concomitant]
     Active Substance: METHOTREXATE
     Dosage: 25 MG, WEEKLY (INJECTION ONCE A WEEK ON SUNDAYS)
     Route: 058
     Dates: start: 20190917
  24. PREGABALIN [Concomitant]
     Active Substance: PREGABALIN
     Dosage: UNK
  25. PREGABALIN [Concomitant]
     Active Substance: PREGABALIN
     Dosage: 1 DF (DOSAGE INFORMATION NOT AVAILABLE)
     Route: 065
  26. SULFASALAZINE [Concomitant]
     Active Substance: SULFASALAZINE
     Dosage: 1500 MG, 2X/DAY
     Route: 064
     Dates: start: 20191213

REACTIONS (12)
  - Tissue infiltration [Recovering/Resolving]
  - Nerve compression [Recovered/Resolved]
  - Pain in extremity [Recovered/Resolved]
  - Hypertension [Unknown]
  - Gait disturbance [Not Recovered/Not Resolved]
  - Limb discomfort [Not Recovered/Not Resolved]
  - Osteoarthritis [Unknown]
  - Condition aggravated [Not Recovered/Not Resolved]
  - Off label use [Unknown]
  - Intentional product use issue [Unknown]
  - Off label use [Unknown]
  - Off label use [Unknown]

NARRATIVE: CASE EVENT DATE: 20210817
